FAERS Safety Report 22206257 (Version 1)
Quarter: 2023Q2

REPORT INFORMATION
  Report Type: Spontaneous
  Country: US (occurrence: None)
  Receive Date: 20230412
  Receipt Date: 20230412
  Transmission Date: 20230722
  Serious: Yes (Life-Threatening, Hospitalization)
  Sender: FDA-Public Use
  Company Number: None

PATIENT
  Age: 60 Year
  Sex: Female
  Weight: 56.7 kg

DRUGS (1)
  1. 4-FLUOROPHENIBUT [Suspect]
     Active Substance: 4-FLUOROPHENIBUT
     Indication: Anxiety
     Dosage: FREQUENCY : ONCE;?
     Route: 048
     Dates: start: 20230409, end: 20230410

REACTIONS (3)
  - Accidental overdose [None]
  - Toxic encephalopathy [None]
  - Apnoea [None]

NARRATIVE: CASE EVENT DATE: 20230410
